FAERS Safety Report 7723289-X (Version None)
Quarter: 2011Q3

REPORT INFORMATION
  Report Type: 
  Country: None (occurrence: None)
  Receive Date: 20110901
  Receipt Date: 20110825
  Transmission Date: 20111222
  Serious: Yes (Other)
  Sender: FDA-Public Use
  Company Number: US-ABBOTT-11P-163-0849848-00

PATIENT
  Age: 57 Year
  Sex: Male

DRUGS (11)
  1. DESOXIMETASONE [Concomitant]
     Indication: PRODUCT USED FOR UNKNOWN INDICATION
     Dosage: APPLY TO AFFECTED AREA ONCE A DAY
     Route: 061
  2. BLOOD PRESSURE MEDICATION [Concomitant]
  3. HUMIRA [Suspect]
     Indication: PSORIASIS
     Dates: start: 20080101, end: 20110701
  4. MULTI-VITAMINS [Concomitant]
     Indication: VITAMIN SUPPLEMENTATION
     Route: 048
  5. RIFAMPIN [Concomitant]
     Indication: PRODUCT USED FOR UNKNOWN INDICATION
     Route: 048
  6. COQ10 [Concomitant]
     Indication: SUPPLEMENTATION THERAPY
     Route: 048
  7. FISH OIL [Concomitant]
     Indication: SUPPLEMENTATION THERAPY
     Route: 048
  8. BLOOD PRESSURE MEDICATION [Concomitant]
     Indication: PRODUCT USED FOR UNKNOWN INDICATION
  9. NIACIN [Concomitant]
     Indication: PRODUCT USED FOR UNKNOWN INDICATION
     Dates: end: 20110801
  10. ASPIRIN [Concomitant]
     Indication: CARDIOVASCULAR EVENT PROPHYLAXIS
     Route: 048
  11. AMLODIPINE BESYLATE AND BENAZEPRIL HCL [Concomitant]
     Indication: BLOOD PRESSURE
     Dosage: 5/10, ONE EVERYDAY
     Route: 048

REACTIONS (11)
  - CHEST PAIN [None]
  - ARTHRALGIA [None]
  - TUBERCULIN TEST POSITIVE [None]
  - MYALGIA [None]
  - NEPHROLITHIASIS [None]
  - BLOOD GLUCOSE INCREASED [None]
  - BENIGN PROSTATIC HYPERPLASIA [None]
  - BLOOD CHOLESTEROL ABNORMAL [None]
  - PSORIASIS [None]
  - INCORRECT DOSE ADMINISTERED [None]
  - BLOOD PRESSURE INCREASED [None]
